FAERS Safety Report 7112778-7 (Version None)
Quarter: 2010Q4

REPORT INFORMATION
  Report Type: 
  Country: None (occurrence: None)
  Receive Date: 20101119
  Receipt Date: 20101115
  Transmission Date: 20110411
  Serious: Yes (Death, Other)
  Sender: FDA-Public Use
  Company Number: PHFR2010IE00775

PATIENT
  Sex: Male

DRUGS (3)
  1. CLOZARIL [Suspect]
     Indication: SCHIZOPHRENIA
     Dosage: 350 MG, BID
     Dates: start: 20030801
  2. ZIMOVANE [Concomitant]
     Dosage: 7.5 MG, NOCTE
  3. RIVOTRIL [Concomitant]
     Dosage: 0.25 MG, BID

REACTIONS (5)
  - ARM AMPUTATION [None]
  - DEATH [None]
  - DRUG ABUSE [None]
  - HYPOTHERMIA [None]
  - LOSS OF CONSCIOUSNESS [None]
